FAERS Safety Report 5573683-0 (Version None)
Quarter: 2007Q4

REPORT INFORMATION
  Report Type: 
  Country: None (occurrence: None)
  Receive Date: 20071226
  Receipt Date: 20071217
  Transmission Date: 20080405
  Serious: Yes (Other)
  Sender: FDA-Public Use
  Company Number: US-JNJFOC-20071204871

PATIENT
  Sex: Female
  Weight: 81.65 kg

DRUGS (7)
  1. REMICADE [Suspect]
     Indication: RHEUMATOID ARTHRITIS
     Route: 042
  2. REMICADE [Suspect]
     Indication: PSORIATIC ARTHROPATHY
     Route: 042
  3. REMICADE [Suspect]
     Indication: PSORIASIS
     Route: 042
  4. ZOLOFT [Concomitant]
     Indication: DEPRESSION
  5. METFORMIN HCL [Concomitant]
  6. METFORMIN HCL [Concomitant]
     Indication: DIABETES MELLITUS
  7. ANTI-HYPERTENSIVES [Concomitant]
     Indication: HYPERTENSION

REACTIONS (3)
  - DIABETES MELLITUS [None]
  - POSTNASAL DRIP [None]
  - PSORIASIS [None]
